FAERS Safety Report 9285172 (Version 1)
Quarter: 2013Q2

REPORT INFORMATION
  Report Type: Spontaneous
  Country: US (occurrence: US)
  Receive Date: 20130513
  Receipt Date: 20130513
  Transmission Date: 20140414
  Serious: No
  Sender: FDA-Public Use
  Company Number: US-ASTRAZENECA-2013SE24463

PATIENT
  Sex: Male

DRUGS (1)
  1. NEXIUM [Suspect]
     Route: 048

REACTIONS (5)
  - Throat tightness [Unknown]
  - Hearing impaired [Unknown]
  - Memory impairment [Unknown]
  - Dysphagia [Unknown]
  - Dysgeusia [Unknown]
